FAERS Safety Report 23119330 (Version 1)
Quarter: 2023Q4

REPORT INFORMATION
  Report Type: Spontaneous
  Country: CA (occurrence: None)
  Receive Date: 20231028
  Receipt Date: 20231028
  Transmission Date: 20240110
  Serious: Yes (Other)
  Sender: FDA-Public Use
  Company Number: CA-ROCHE-3447266

PATIENT
  Age: 44 Year
  Sex: Female
  Weight: 124.3 kg

DRUGS (2)
  1. ALECTINIB [Suspect]
     Active Substance: ALECTINIB
     Indication: Product used for unknown indication
     Route: 065
     Dates: start: 20200801
  2. LORBRENA [Concomitant]
     Active Substance: LORLATINIB
     Dates: start: 20221223

REACTIONS (1)
  - Neoplasm progression [Unknown]
